FAERS Safety Report 11485734 (Version 2)
Quarter: 2015Q4

REPORT INFORMATION
  Report Type: Report from Study
  Country: US (occurrence: US)
  Receive Date: 20150910
  Receipt Date: 20151026
  Transmission Date: 20160304
  Serious: No
  Sender: FDA-Public Use
  Company Number: US-AMGEN-USASP2015090358

PATIENT
  Age: 36 Year
  Sex: Male

DRUGS (2)
  1. ENBREL [Suspect]
     Active Substance: ETANERCEPT
     Indication: PSORIATIC ARTHROPATHY
     Dosage: 50 MG, QWK
     Route: 065
     Dates: start: 20141029, end: 201508
  2. AMOXICILLIN. [Suspect]
     Active Substance: AMOXICILLIN
     Indication: TOOTH INFECTION
     Dosage: UNK
     Route: 065

REACTIONS (6)
  - Rash pruritic [Unknown]
  - Skin irritation [Unknown]
  - Erythema [Unknown]
  - Tooth extraction [Unknown]
  - Rash [Unknown]
  - Tooth infection [Unknown]

NARRATIVE: CASE EVENT DATE: 201508
